FAERS Safety Report 10759084 (Version 1)
Quarter: 2015Q1

REPORT INFORMATION
  Report Type: Spontaneous
  Country: US (occurrence: None)
  Receive Date: 20150202
  Receipt Date: 20150202
  Transmission Date: 20150721
  Serious: No
  Sender: FDA-Public Use
  Company Number: None

PATIENT
  Age: 52 Year
  Sex: Female
  Weight: 78.02 kg

DRUGS (1)
  1. BELVIQ [Suspect]
     Active Substance: LORCASERIN HYDROCHLORIDE
     Indication: WEIGHT DECREASED
     Dosage: 2 PILLS PER DAY
     Route: 048
     Dates: start: 20150104, end: 20150125

REACTIONS (9)
  - Anger [None]
  - Depression [None]
  - Mood swings [None]
  - Morbid thoughts [None]
  - Feeling cold [None]
  - Depressed mood [None]
  - Asthenia [None]
  - Mental impairment [None]
  - Confusional state [None]

NARRATIVE: CASE EVENT DATE: 20150126
